FAERS Safety Report 25376891 (Version 1)
Quarter: 2025Q2

REPORT INFORMATION
  Report Type: Spontaneous
  Country: US (occurrence: US)
  Receive Date: 20250530
  Receipt Date: 20250530
  Transmission Date: 20250717
  Serious: No
  Sender: CIPLA
  Company Number: US-CIPLA LTD.-2024US09247

PATIENT

DRUGS (2)
  1. ALBUTEROL [Suspect]
     Active Substance: ALBUTEROL
     Indication: Asthma
  2. ALBUTEROL [Suspect]
     Active Substance: ALBUTEROL
     Dosage: 180 MICROGRAM, TID (2 PUFFS 3 TIMES A DAY)

REACTIONS (4)
  - Incorrect dose administered by device [Unknown]
  - Wrong technique in product usage process [Unknown]
  - Product physical consistency issue [Unknown]
  - Product cleaning inadequate [Unknown]
